FAERS Safety Report 5333242-1 (Version None)
Quarter: 2007Q2

REPORT INFORMATION
  Report Type: 
  Country: None (occurrence: None)
  Receive Date: 20070521
  Receipt Date: 20070521
  Transmission Date: 20071010
  Serious: Yes (Hospitalization)
  Sender: FDA-Public Use
  Company Number: None

PATIENT
  Sex: Female
  Weight: 65.45 kg

DRUGS (7)
  1. CISPLATIN [Suspect]
     Dosage: 92 MG
  2. GEMCITABINE HCL [Suspect]
     Dosage: 1840 MG
  3. LORTAB [Concomitant]
  4. PAXIL [Concomitant]
  5. PERCOCET [Concomitant]
  6. PREMPRO [Concomitant]
  7. XANAX [Concomitant]

REACTIONS (5)
  - CONFUSIONAL STATE [None]
  - DEHYDRATION [None]
  - ELECTROLYTE IMBALANCE [None]
  - NAUSEA [None]
  - VOMITING [None]
